FAERS Safety Report 8566226-0 (Version None)
Quarter: 2012Q3

REPORT INFORMATION
  Report Type: 
  Country: None (occurrence: None)
  Receive Date: 20120803
  Receipt Date: 20111011
  Transmission Date: 20120928
  Serious: No
  Sender: FDA-Public Use
  Company Number: US-ABBOTT-11P-163-0863688-00

PATIENT
  Sex: Male
  Weight: 95.34 kg

DRUGS (7)
  1. AMLODIPINE [Concomitant]
     Indication: BLOOD CHOLESTEROL
  2. DICLOFENAC SODIUM [Concomitant]
     Indication: ARTHRITIS
  3. NIASPAN [Suspect]
     Indication: BLOOD CHOLESTEROL
     Dates: start: 20100101
  4. SIMVASTATIN [Concomitant]
     Indication: BLOOD CHOLESTEROL
  5. LISINOPRIL [Concomitant]
     Indication: BLOOD PRESSURE
  6. FENOFIBRATE [Concomitant]
     Indication: BLOOD CHOLESTEROL
  7. ASPIRIN [Concomitant]
     Indication: CARDIAC DISORDER

REACTIONS (1)
  - FLUSHING [None]
